FAERS Safety Report 24319391 (Version 1)
Quarter: 2024Q3

REPORT INFORMATION
  Report Type: Report from Study
  Country: US (occurrence: US)
  Receive Date: 20240914
  Receipt Date: 20240914
  Transmission Date: 20241017
  Serious: Yes (Other)
  Sender: ABBVIE
  Company Number: US-ABBVIE-5914842

PATIENT
  Sex: Female

DRUGS (1)
  1. HUMIRA [Suspect]
     Active Substance: ADALIMUMAB
     Indication: Product used for unknown indication
     Route: 058
     Dates: start: 2021

REACTIONS (5)
  - Discharge [Unknown]
  - Systemic lupus erythematosus [Unknown]
  - Retained placenta operation [Unknown]
  - Immune system disorder [Unknown]
  - Impaired healing [Not Recovered/Not Resolved]
